FAERS Safety Report 11298278 (Version 1)
Quarter: 2015Q3

REPORT INFORMATION
  Report Type: Spontaneous
  Country: US (occurrence: US)
  Receive Date: 20150722
  Receipt Date: 20150722
  Transmission Date: 20151125
  Serious: No
  Sender: FDA-Public Use
  Company Number: US-ELI_LILLY_AND_COMPANY-US201108004819

PATIENT
  Sex: Male

DRUGS (5)
  1. BYETTA [Concomitant]
     Active Substance: EXENATIDE
     Dosage: UNK, UNKNOWN
  2. VITAMIN C [Concomitant]
     Active Substance: ASCORBIC ACID
  3. EFFIENT [Suspect]
     Active Substance: PRASUGREL HYDROCHLORIDE
     Indication: STENT PLACEMENT
     Dosage: 10 MG, UNK
     Dates: start: 201103
  4. BUMEX [Concomitant]
     Active Substance: BUMETANIDE
  5. NEURONTIN [Concomitant]
     Active Substance: GABAPENTIN

REACTIONS (3)
  - Feeling abnormal [Unknown]
  - Blood glucose increased [Recovering/Resolving]
  - Contusion [Recovering/Resolving]
